FAERS Safety Report 8444934-X (Version None)
Quarter: 2012Q2

REPORT INFORMATION
  Report Type: 
  Country: None (occurrence: None)
  Receive Date: 20120618
  Receipt Date: 20120613
  Transmission Date: 20120825
  Serious: Yes (Death)
  Sender: FDA-Public Use
  Company Number: US-CELGENEUS-163-21880-11030928

PATIENT
  Sex: Female

DRUGS (25)
  1. ARANESP [Concomitant]
     Dosage: 100 MICROGRAM
     Route: 058
     Dates: start: 20101029
  2. ARANESP [Concomitant]
     Dosage: 200MCG ALT 150MCG
     Route: 058
  3. VITAMIN D [Concomitant]
     Dosage: 50,000
     Route: 065
  4. LASIX [Concomitant]
     Dosage: 20MG ALT 40MG
     Route: 065
     Dates: start: 20100609
  5. ALDACTONE [Concomitant]
     Dosage: 25 MILLIGRAM
     Route: 065
     Dates: start: 20100609
  6. AVAPRO [Concomitant]
     Dosage: 150 MILLIGRAM
     Route: 065
  7. COLACE [Concomitant]
     Dosage: 200 MILLIGRAM
     Route: 065
  8. METOLAZONE [Concomitant]
     Route: 065
     Dates: start: 20100609
  9. NEPRO [Concomitant]
     Route: 065
  10. LASIX [Concomitant]
     Dosage: 40 MILLIGRAM
     Route: 065
     Dates: start: 20100714
  11. ALDACTONE [Concomitant]
     Dosage: 25 MILLIGRAM
     Route: 065
  12. ARANESP [Concomitant]
     Dosage: 60MCG ALT 100MCG
     Route: 058
     Dates: start: 20100714
  13. LOVENOX [Concomitant]
     Dosage: 40 MILLIGRAM
     Route: 058
     Dates: start: 20101029
  14. LIPITOR [Concomitant]
     Dosage: 10 MILLIGRAM
     Route: 065
  15. DECADRON [Concomitant]
     Dosage: 20 MILLIGRAM
     Route: 065
     Dates: start: 20101029
  16. LEVOXYL [Concomitant]
     Dosage: 50 MICROGRAM
     Route: 065
  17. RENA [Concomitant]
     Dosage: 5.5 MILLIGRAM
     Route: 065
  18. DIGOXIN [Concomitant]
     Dosage: .125 MILLIGRAM
     Route: 065
  19. LASIX [Concomitant]
     Dosage: 20 MILLIGRAM
     Route: 065
  20. RENVELA [Concomitant]
     Dosage: 800 MILLIGRAM
     Route: 065
  21. METOPROLOL SUCCINATE [Concomitant]
     Dosage: 25 MILLIGRAM
     Route: 065
  22. REVLIMID [Suspect]
     Dosage: 2.5 MILLIGRAM
     Route: 048
     Dates: start: 20110209, end: 20110411
  23. METOLAZONE [Concomitant]
     Route: 065
  24. ASPIRIN [Concomitant]
     Dosage: 81 MILLIGRAM
     Route: 065
  25. LASIX [Concomitant]
     Dosage: 40MG ALT 20MG
     Route: 065

REACTIONS (6)
  - RASH PRURITIC [None]
  - NEUTROPHIL COUNT DECREASED [None]
  - NEOPLASM PROGRESSION [None]
  - MULTIPLE MYELOMA [None]
  - CARDIOVASCULAR DISORDER [None]
  - DIARRHOEA [None]
